FAERS Safety Report 21099619 (Version 3)
Quarter: 2022Q3

REPORT INFORMATION
  Report Type: Spontaneous
  Country: US (occurrence: US)
  Receive Date: 20220719
  Receipt Date: 20220729
  Transmission Date: 20221026
  Serious: No
  Sender: FDA-Public Use
  Company Number: US-ORGANON-O2207USA001389

PATIENT
  Sex: Female
  Weight: 81.633 kg

DRUGS (3)
  1. NEXPLANON [Suspect]
     Active Substance: ETONOGESTREL
     Indication: Contraception
     Dosage: 1 IMPLANT FOR 3 YEARS
     Route: 059
     Dates: start: 20220307
  2. NEXPLANON [Suspect]
     Active Substance: ETONOGESTREL
     Indication: Menstrual cycle management
  3. WELLBUTRIN [Concomitant]
     Active Substance: BUPROPION HYDROCHLORIDE
     Dosage: UNK

REACTIONS (4)
  - Hypomenorrhoea [Not Recovered/Not Resolved]
  - Implant site pain [Recovered/Resolved]
  - Polymenorrhoea [Not Recovered/Not Resolved]
  - Product use in unapproved indication [Unknown]

NARRATIVE: CASE EVENT DATE: 20220101
